FAERS Safety Report 22638426 (Version 1)
Quarter: 2023Q2

REPORT INFORMATION
  Report Type: Spontaneous
  Country: US (occurrence: US)
  Receive Date: 20230626
  Receipt Date: 20230626
  Transmission Date: 20230722
  Serious: No
  Sender: FDA-Public Use
  Company Number: US-SA-SAC20230623000930

PATIENT
  Age: 67 Year
  Sex: Female

DRUGS (8)
  1. DUPIXENT [Suspect]
     Active Substance: DUPILUMAB
     Indication: Dermatitis atopic
     Dosage: 300 MG, FREQUENCY: OTHER
     Route: 058
     Dates: start: 20220624
  2. TRETINOIN [Concomitant]
     Active Substance: TRETINOIN
     Dosage: EXTERNAL CREAM
  3. SYNTHROID [Concomitant]
     Active Substance: LEVOTHYROXINE SODIUM
     Route: 048
  4. AMLODIPINE BESYLATE [Concomitant]
     Active Substance: AMLODIPINE BESYLATE
     Route: 048
  5. FELDENE [Concomitant]
     Active Substance: PIROXICAM
     Route: 048
  6. NEXIUM I.V. [Concomitant]
     Active Substance: ESOMEPRAZOLE SODIUM
     Route: 048
  7. TYLENOL PM, EXTRA STRENGTH [Concomitant]
     Route: 048
  8. CLARINEX [Concomitant]
     Active Substance: DESLORATADINE
     Route: 048

REACTIONS (1)
  - Dyspnoea [Unknown]
